FAERS Safety Report 5203945-8 (Version None)
Quarter: 2007Q1

REPORT INFORMATION
  Report Type: 
  Country: None (occurrence: None)
  Receive Date: 20070105
  Receipt Date: 20070105
  Transmission Date: 20070707
  Serious: Yes (Other)
  Sender: FDA-Public Use
  Company Number: None

PATIENT
  Sex: Male
  Weight: 76.8 kg

DRUGS (1)
  1. GLEEVEC [Suspect]
     Dosage: 180MG  PO QD  PO
     Route: 048
     Dates: start: 20061117, end: 20061227

REACTIONS (4)
  - CONDITION AGGRAVATED [None]
  - DRUG TOXICITY [None]
  - NEUTROPENIA [None]
  - PSYCHOTIC DISORDER [None]
